FAERS Safety Report 5623392-4 (Version None)
Quarter: 2008Q1

REPORT INFORMATION
  Report Type: 
  Country: None (occurrence: None)
  Receive Date: 20080212
  Receipt Date: 20080131
  Transmission Date: 20080703
  Serious: Yes (Life-Threatening, Hospitalization)
  Sender: FDA-Public Use
  Company Number: US-PFIZER INC-2008011612

PATIENT
  Sex: Female

DRUGS (12)
  1. SERTRALINE [Suspect]
     Indication: DEPRESSION
     Dosage: DAILY DOSE:100MG
  2. TRAZODONE HCL [Suspect]
     Dosage: DAILY DOSE:50MG
  3. MORPHINE [Suspect]
     Indication: PAIN
  4. MORPHINE [Suspect]
     Indication: MUSCLE SPASMS
  5. DIAZEPAM [Suspect]
     Dosage: DAILY DOSE:8MG-FREQ:AS NEEDED
  6. OXYBUTYNIN CHLORIDE [Suspect]
     Dosage: DAILY DOSE:10MG
  7. CLONIDINE [Suspect]
     Dosage: DAILY DOSE:300MCG-FREQ:AS NEEDED
  8. FLUTICASONE PROPIONATE [Concomitant]
  9. METAXALONE [Concomitant]
     Dosage: DAILY DOSE:2400MG
  10. OXYCODONE HCL [Concomitant]
     Indication: PAIN
     Dosage: FREQ:AS NEEDED
  11. BACLOFEN [Concomitant]
     Dosage: DAILY DOSE:160MG
  12. PREMARIN [Concomitant]
     Dosage: DAILY DOSE:.6MG

REACTIONS (6)
  - ACCIDENTAL OVERDOSE [None]
  - MENTAL STATUS CHANGES [None]
  - OVERDOSE [None]
  - SOMNOLENCE [None]
  - SUBSTANCE ABUSE [None]
  - SUICIDAL IDEATION [None]
